FAERS Safety Report 4365481-0 (Version None)
Quarter: 2004Q2

REPORT INFORMATION
  Report Type: 
  Country: None (occurrence: None)
  Receive Date: 20040526
  Receipt Date: 20040505
  Transmission Date: 20050107
  Serious: Yes (Hospitalization)
  Sender: FDA-Public Use
  Company Number: GB-BRISTOL-MYERS SQUIBB COMPANY-12578829

PATIENT
  Age: 58 Year
  Sex: Female
  Weight: 74 kg

DRUGS (5)
  1. CISPLATIN [Suspect]
     Indication: NON-SMALL CELL LUNG CANCER
     Dosage: C4: 120 MG STARTED ON 02-MAR-2004
     Route: 042
     Dates: end: 20040302
  2. ETOPOSIDE [Suspect]
     Indication: NON-SMALL CELL LUNG CANCER
     Dosage: C4: 180 MG STARTED ON 02-MAR-2004
     Route: 042
     Dates: end: 20040304
  3. DOMPERIDONE [Concomitant]
     Indication: PROPHYLAXIS
     Route: 048
     Dates: start: 20040302, end: 20040304
  4. DEXAMETHASONE [Concomitant]
     Indication: PROPHYLAXIS
     Route: 048
     Dates: start: 20040302, end: 20040304
  5. FLUCONAZOLE [Concomitant]
     Route: 048
     Dates: start: 20040308

REACTIONS (3)
  - NEUTROPENIC SEPSIS [None]
  - OESOPHAGITIS [None]
  - PYREXIA [None]
